FAERS Safety Report 8395847-3 (Version None)
Quarter: 2012Q2

REPORT INFORMATION
  Report Type: 
  Country: None (occurrence: None)
  Receive Date: 20120530
  Receipt Date: 20120525
  Transmission Date: 20120825
  Serious: Yes (Hospitalization, Other)
  Sender: FDA-Public Use
  Company Number: CR-ABBOTT-12P-039-0939790-00

PATIENT
  Age: 35 Year
  Sex: Female

DRUGS (2)
  1. HUMIRA [Suspect]
     Indication: VASCULITIS CEREBRAL
     Route: 058
     Dates: start: 20111130, end: 20120505
  2. LISALGIL [Suspect]
     Indication: PAIN
     Route: 030
     Dates: start: 20120501

REACTIONS (5)
  - CELLULITIS [None]
  - RENAL FAILURE [None]
  - PNEUMONIA [None]
  - SEPSIS [None]
  - ERYSIPELAS [None]
